FAERS Safety Report 6258621-X (Version None)
Quarter: 2009Q3

REPORT INFORMATION
  Report Type: 
  Country: None (occurrence: None)
  Receive Date: 20090707
  Receipt Date: 20090626
  Transmission Date: 20100115
  Serious: Yes (Other)
  Sender: FDA-Public Use
  Company Number: PT-JNJFOC-20090700067

PATIENT
  Age: 7 Decade
  Sex: Female

DRUGS (7)
  1. CAELYX [Suspect]
     Dosage: CYCLE 2
     Route: 042
  2. CAELYX [Suspect]
     Indication: BREAST CANCER METASTATIC
     Dosage: CYCLE 1
     Route: 042
  3. CYCLOPHOSPHAMIDE [Suspect]
     Indication: BREAST CANCER METASTATIC
     Route: 065
  4. CARVEDILOL [Concomitant]
     Indication: CARDIAC FAILURE
     Route: 065
  5. TROMALYT [Concomitant]
     Indication: CARDIAC FAILURE
     Route: 065
  6. CLEMASTINE FUMARATE [Concomitant]
     Indication: PREMEDICATION
     Route: 065
  7. PREDNISONE [Concomitant]
     Indication: PREMEDICATION
     Route: 065

REACTIONS (5)
  - ANGIOEDEMA [None]
  - CARDIOVASCULAR DISORDER [None]
  - HYPERSENSITIVITY [None]
  - PALPITATIONS [None]
  - PARAESTHESIA [None]
